FAERS Safety Report 15472573 (Version 2)
Quarter: 2018Q4

REPORT INFORMATION
  Report Type: Spontaneous
  Country: US (occurrence: US)
  Receive Date: 20181008
  Receipt Date: 20181114
  Transmission Date: 20190205
  Serious: Yes (Other)
  Sender: FDA-Public Use
  Company Number: US-LUPIN PHARMACEUTICALS INC.-2018-06871

PATIENT
  Age: 93 Year
  Sex: Female
  Weight: 63.49 kg

DRUGS (4)
  1. LOSARTAN. [Concomitant]
     Active Substance: LOSARTAN
     Indication: HYPERTENSION
     Dosage: UNK
     Route: 065
  2. AZITHROMYCIN TABLETS USP, 250 MG [Suspect]
     Active Substance: AZITHROMYCIN ANHYDROUS
     Dosage: 250 MG, QD
     Route: 048
     Dates: start: 20180912, end: 20180915
  3. AZITHROMYCIN TABLETS USP, 250 MG [Suspect]
     Active Substance: AZITHROMYCIN ANHYDROUS
     Indication: COUGH
     Dosage: 250 MG, BID
     Route: 048
     Dates: start: 20180911, end: 20180911
  4. SYNTHROID [Concomitant]
     Active Substance: LEVOTHYROXINE SODIUM
     Indication: THYROID DISORDER
     Dosage: UNK
     Route: 065

REACTIONS (3)
  - Deafness [Not Recovered/Not Resolved]
  - Condition aggravated [Not Recovered/Not Resolved]
  - Product use in unapproved indication [None]

NARRATIVE: CASE EVENT DATE: 20180913
